FAERS Safety Report 8379249-1 (Version None)
Quarter: 2012Q2

REPORT INFORMATION
  Report Type: 
  Country: None (occurrence: None)
  Receive Date: 20120523
  Receipt Date: 20120516
  Transmission Date: 20120825
  Serious: Yes (Hospitalization)
  Sender: FDA-Public Use
  Company Number: US-BAYER-2012-049635

PATIENT
  Age: 25 Year
  Sex: Female

DRUGS (14)
  1. HYDROCODONE BITARTRATE + ACETAMINOPHEN [Concomitant]
     Indication: PAIN
     Dosage: 5-500MG 1 TO 2 TABLETS EVERY 4 TO 6 HOURS
     Route: 048
     Dates: start: 20110803
  2. ZITHROMAX [Concomitant]
  3. LEVOFLOXACIN [Concomitant]
     Dosage: 500 MG, UNK
     Route: 048
     Dates: start: 20110803
  4. CERON SYRUP [Concomitant]
     Indication: PULMONARY CONGESTION
     Dosage: ? TEASPOON, TID AS NEEDED
     Route: 048
     Dates: start: 20110726
  5. ROCEPHIN [Concomitant]
  6. ATIVAN [Concomitant]
  7. DROSPIRENONE AND ETHINYL ESTRADIOL [Suspect]
     Route: 048
  8. AZITHROMYCIN [Concomitant]
     Dosage: 250 MG, UNK
     Route: 048
     Dates: start: 20110726
  9. DOXYCYCLINE [Concomitant]
     Dosage: 100 MG, BID
     Route: 048
     Dates: start: 20110803
  10. CEFTIN [Concomitant]
  11. BEYAZ [Suspect]
     Route: 048
  12. METHYLDOPA [Concomitant]
     Dosage: ONE TEASPOON, HS
     Dates: start: 20110726
  13. YAZ [Suspect]
     Route: 048
  14. VIBRAMYCIN [Concomitant]
     Dosage: 100 MG, EVERY DAY
     Route: 048

REACTIONS (2)
  - PULMONARY INFARCTION [None]
  - PULMONARY EMBOLISM [None]
